FAERS Safety Report 10691545 (Version 1)
Quarter: 2015Q1

REPORT INFORMATION
  Report Type: Spontaneous
  Country: DE (occurrence: CN)
  Receive Date: 20150105
  Receipt Date: 20150105
  Transmission Date: 20150720
  Serious: Yes (Other)
  Sender: FDA-Public Use
  Company Number: DE-ACTELION-A-NJ2014-110570

PATIENT
  Age: 4 Year
  Sex: Male

DRUGS (3)
  1. VENTAVIS [Suspect]
     Active Substance: ILOPROST
     Indication: PULMONARY HYPERTENSION
     Dosage: 20 MCG, UNK
     Route: 055
     Dates: start: 20141209, end: 20141209
  2. MILRINONE [Concomitant]
     Active Substance: MILRINONE
  3. DOPAMINE [Concomitant]
     Active Substance: DOPAMINE\DOPAMINE HYDROCHLORIDE

REACTIONS (5)
  - Off label use [Recovering/Resolving]
  - Respiratory depression [Recovering/Resolving]
  - Wheezing [Recovering/Resolving]
  - Respiratory acidosis [Recovering/Resolving]
  - Bronchospasm [Recovering/Resolving]

NARRATIVE: CASE EVENT DATE: 20141209
